FAERS Safety Report 13365596 (Version 1)
Quarter: 2017Q1

REPORT INFORMATION
  Report Type: Spontaneous
  Country: US (occurrence: US)
  Receive Date: 20170323
  Receipt Date: 20170323
  Transmission Date: 20170429
  Serious: Yes (Disabling)
  Sender: FDA-Public Use
  Company Number: US-WARNER CHILCOTT-2016-001050

PATIENT
  Age: 56 Year
  Sex: Female

DRUGS (1)
  1. ESTRACE [Suspect]
     Active Substance: ESTRADIOL
     Dosage: UNKNOWN
     Route: 067

REACTIONS (4)
  - Disability [Unknown]
  - Hot flush [Unknown]
  - Sleep disorder [Unknown]
  - Drug dose omission [Unknown]
